FAERS Safety Report 19366923 (Version 2)
Quarter: 2021Q2

REPORT INFORMATION
  Report Type: Other
  Country: IL (occurrence: IL)
  Receive Date: 20210603
  Receipt Date: 20210627
  Transmission Date: 20210717
  Serious: No
  Sender: FDA-Public Use
  Company Number: IL-ROCHE-2841166

PATIENT
  Sex: Female

DRUGS (1)
  1. OCREVUS [Suspect]
     Active Substance: OCRELIZUMAB
     Indication: RELAPSING-REMITTING MULTIPLE SCLEROSIS
     Route: 042
     Dates: start: 20180604

REACTIONS (3)
  - Fungal skin infection [Recovering/Resolving]
  - Ear infection fungal [Recovering/Resolving]
  - Fungal rhinitis [Recovering/Resolving]
